FAERS Safety Report 7717711-2 (Version None)
Quarter: 2011Q3

REPORT INFORMATION
  Report Type: 
  Country: None (occurrence: None)
  Receive Date: 20110830
  Receipt Date: 20110822
  Transmission Date: 20111222
  Serious: Yes (Other)
  Sender: FDA-Public Use
  Company Number: PL-JNJFOC-20110810328

PATIENT

DRUGS (3)
  1. REMICADE [Suspect]
     Indication: PRODUCT USED FOR UNKNOWN INDICATION
     Route: 042
  2. REMICADE [Suspect]
     Dosage: 3RD INFLIXIMAB DOSE
     Route: 042
  3. REMICADE [Suspect]
     Route: 042

REACTIONS (2)
  - ABSCESS RUPTURE [None]
  - DRUG INEFFECTIVE [None]
